FAERS Safety Report 9652404 (Version 1)
Quarter: 2013Q4

REPORT INFORMATION
  Report Type: Spontaneous
  Country: US (occurrence: None)
  Receive Date: 20131025
  Receipt Date: 20131025
  Transmission Date: 20140711
  Serious: Yes (Disabling)
  Sender: FDA-Public Use
  Company Number: AUR-APL-2013-08632

PATIENT
  Age: 46 Year
  Sex: Male
  Weight: 109 kg

DRUGS (4)
  1. GABAPENTIN (GABAPENTIN) [Suspect]
     Dates: start: 2011
  2. LISINOPRIL (LISINOPRIL) [Suspect]
     Dates: start: 2009
  3. VERAPAMIL HCL [Suspect]
     Dates: start: 2009
  4. CELEBREX (CELECOXIB) [Suspect]
     Dates: start: 2002

REACTIONS (5)
  - Migraine [None]
  - Hypertension [None]
  - Ischaemia [None]
  - No therapeutic response [None]
  - Off label use [None]
